FAERS Safety Report 5313004-1 (Version None)
Quarter: 2007Q2

REPORT INFORMATION
  Report Type: 
  Country: None (occurrence: None)
  Receive Date: 20070430
  Receipt Date: 20070419
  Transmission Date: 20071010
  Serious: Yes (Hospitalization, Other)
  Sender: FDA-Public Use
  Company Number: FR-PFIZER INC-2006148206

PATIENT
  Age: 41 Year
  Sex: Female

DRUGS (6)
  1. EPIRUBICIN HYDROCHLORIDE [Suspect]
     Indication: BREAST CANCER
     Route: 042
     Dates: start: 20060927, end: 20061018
  2. ENDOXAN [Suspect]
     Indication: BREAST CANCER
     Route: 042
     Dates: start: 20060927, end: 20061018
  3. PRIMPERAN INJ [Suspect]
     Route: 048
     Dates: start: 20060927, end: 20061018
  4. ZOPHREN [Suspect]
     Route: 048
     Dates: start: 20060927, end: 20061018
  5. FLUOROURACIL [Suspect]
     Indication: BREAST CANCER
     Route: 042
     Dates: start: 20060927, end: 20061018
  6. METHYLPREDNISOLONE 16MG TAB [Concomitant]
     Route: 048

REACTIONS (3)
  - COUGH [None]
  - DYSPNOEA [None]
  - OBLITERATIVE BRONCHIOLITIS [None]
